FAERS Safety Report 8312745 (Version 3)
Quarter: 2012Q4

REPORT INFORMATION
  Report Type: 
  Country: FR (occurrence: FR)
  Receive Date: 20111227
  Receipt Date: 20121003
  Transmission Date: 20130627
  Serious: Yes (Hospitalization, Other)
  Sender: FDA-Public Use
  Company Number: FR-PFIZER INC-2011308192

PATIENT
  Age: 38 Year
  Sex: Male

DRUGS (6)
  1. ZOLOFT [Suspect]
     Dosage: 50 mg, 1x/day
     Route: 048
     Dates: start: 1997
  2. IMUREL [Suspect]
     Dosage: UNK
     Route: 048
     Dates: start: 1997, end: 2000
  3. LIORESAL [Suspect]
     Dosage: 10 mg, 2x/day
     Route: 048
  4. RUBOZINC [Concomitant]
     Dosage: 4 DF daily
  5. MEGAMAG [Concomitant]
     Dosage: 4 DF daily
  6. SPECIAFOLDINE [Concomitant]
     Dosage: twice per week

REACTIONS (10)
  - Nodular regenerative hyperplasia [Not Recovered/Not Resolved]
  - Portal hypertension [Not Recovered/Not Resolved]
  - Oesophageal varices haemorrhage [Recovering/Resolving]
  - Ascites [Recovered/Resolved]
  - Hepatitis viral [Unknown]
  - Thrombocytopenia [Unknown]
  - Hepatic fibrosis [Unknown]
  - Alanine aminotransferase increased [Recovered/Resolved]
  - Gamma-glutamyltransferase increased [Recovered/Resolved]
  - Ceruloplasmin decreased [Unknown]
